FAERS Safety Report 9516920 (Version 2)
Quarter: 2013Q4

REPORT INFORMATION
  Report Type: Spontaneous
  Country: US (occurrence: US)
  Receive Date: 20130911
  Receipt Date: 20131004
  Transmission Date: 20140711
  Serious: Yes (Hospitalization)
  Sender: FDA-Public Use
  Company Number: US-PFIZER INC-2013256661

PATIENT
  Age: 76 Year
  Sex: Male

DRUGS (2)
  1. SUTENT [Suspect]
     Indication: NEOPLASM MALIGNANT
     Dosage: 50 MG, CYCLIC (ONCE DAILY X 4 WKS, OFF 2 WKS)
     Route: 048
     Dates: start: 20130608, end: 20130828
  2. TIKOSYN [Concomitant]
     Dosage: 500 MG, 2X/DAY

REACTIONS (1)
  - Pneumonia [Recovered/Resolved]
